FAERS Safety Report 9525783 (Version 1)
Quarter: 2013Q1

REPORT INFORMATION
  Report Type: Spontaneous
  Country: US (occurrence: None)
  Receive Date: 20130314
  Receipt Date: 20130314
  Transmission Date: 20140127
  Serious: No
  Sender: FDA-Public Use
  Company Number: 1212USA011327

PATIENT
  Age: 48 Year
  Sex: Female

DRUGS (4)
  1. VICTRELIS [Suspect]
     Indication: CHRONIC HEPATITIS C
     Route: 048
     Dates: start: 20120726, end: 20121211
  2. PEGINTRON (PEGINTERFERON ALFA-2B) POWER FOR INJECTION [Suspect]
  3. RIBAPAK (RIBAVIRIN) [Suspect]
  4. HUMIRA (ADALIMUMAB) OPEN LABEL [Concomitant]

REACTIONS (3)
  - Syncope [None]
  - Headache [None]
  - Fatigue [None]
